FAERS Safety Report 5646649-X (Version None)
Quarter: 2008Q1

REPORT INFORMATION
  Report Type: 
  Country: None (occurrence: None)
  Receive Date: 20080303
  Receipt Date: 20080222
  Transmission Date: 20080703
  Serious: Yes (Hospitalization, Other)
  Sender: FDA-Public Use
  Company Number: PHEH2006US01931

PATIENT
  Age: 64 Year
  Sex: Female
  Weight: 96.145 kg

DRUGS (10)
  1. VITAMINS [Concomitant]
  2. HERBAL EXTRACTS NOS [Concomitant]
  3. ZIAC [Concomitant]
     Dosage: UNK, QD
  4. DIFLUCAN [Concomitant]
  5. AREDIA [Suspect]
     Dosage: UNK, QMO
     Route: 042
     Dates: start: 19990501, end: 20020115
  6. ZOMETA [Suspect]
     Dosage: UNK, QMO
     Route: 042
     Dates: start: 20020312, end: 20040519
  7. BENICAR [Concomitant]
     Indication: HYPERTENSION
  8. CELEBREX [Concomitant]
  9. PREMARIN [Concomitant]
     Dates: start: 20010101
  10. BEXTRA [Concomitant]
     Indication: ARTHRITIS

REACTIONS (48)
  - ABSCESS ORAL [None]
  - ALVEOLAR OSTEITIS [None]
  - ANAL HAEMORRHAGE [None]
  - ARTHRITIS [None]
  - BONE DENSITY INCREASED [None]
  - BONE DEVELOPMENT ABNORMAL [None]
  - BREAST CANCER [None]
  - BURNING SENSATION [None]
  - CARPAL TUNNEL SYNDROME [None]
  - COMPUTERISED TOMOGRAM ABNORMAL [None]
  - CYST [None]
  - DEBRIDEMENT [None]
  - EATING DISORDER [None]
  - EMOTIONAL DISTRESS [None]
  - ENDODONTIC PROCEDURE [None]
  - FOOT FRACTURE [None]
  - GINGIVAL ABSCESS [None]
  - GINGIVAL INFECTION [None]
  - HAEMANGIOMA [None]
  - HYPERBARIC OXYGEN THERAPY [None]
  - INCISION SITE INFECTION [None]
  - INFLAMMATION [None]
  - JAW OPERATION [None]
  - LESION EXCISION [None]
  - LIFE EXPECTANCY SHORTENED [None]
  - LUNG NEOPLASM [None]
  - LYMPHADENOPATHY [None]
  - MALIGNANT NEOPLASM PROGRESSION [None]
  - MASTICATION DISORDER [None]
  - METASTASIS [None]
  - NUCLEAR MAGNETIC RESONANCE IMAGING ABNORMAL [None]
  - ORAL CAVITY FISTULA [None]
  - OSTEOMYELITIS [None]
  - OSTEONECROSIS [None]
  - OSTEOPENIA [None]
  - OSTEOSCLEROSIS [None]
  - PAIN [None]
  - PELVIC PAIN [None]
  - PRIMARY SEQUESTRUM [None]
  - RADICULAR CYST [None]
  - RADIOTHERAPY [None]
  - SURGERY [None]
  - SWELLING [None]
  - THYROID NEOPLASM [None]
  - TOOTH EXTRACTION [None]
  - VAGINAL PAIN [None]
  - VULVOVAGINAL BURNING SENSATION [None]
  - X-RAY ABNORMAL [None]
